FAERS Safety Report 7042438-2 (Version None)
Quarter: 2010Q4

REPORT INFORMATION
  Report Type: 
  Country: None (occurrence: None)
  Receive Date: 20101013
  Receipt Date: 20090908
  Transmission Date: 20110411
  Serious: No
  Sender: FDA-Public Use
  Company Number: US-ASTRAZENECA-2009SE11940

PATIENT
  Age: 61 Year
  Sex: Female
  Weight: 47.6 kg

DRUGS (4)
  1. SYMBICORT [Suspect]
     Indication: CHRONIC OBSTRUCTIVE PULMONARY DISEASE
     Dosage: 320/9 UG
     Route: 055
     Dates: start: 20090314
  2. ALBUTEROL [Concomitant]
     Indication: CHRONIC OBSTRUCTIVE PULMONARY DISEASE
  3. THEOPHYLLINE [Concomitant]
  4. PROAIR HFA [Concomitant]

REACTIONS (5)
  - BLISTER [None]
  - DERMATITIS [None]
  - HERPES ZOSTER [None]
  - PAIN [None]
  - WEIGHT INCREASED [None]
